FAERS Safety Report 9633206 (Version 1)
Quarter: 2013Q4

REPORT INFORMATION
  Report Type: Spontaneous
  Country: US (occurrence: None)
  Receive Date: 20131018
  Receipt Date: 20131018
  Transmission Date: 20140711
  Serious: Yes (Hospitalization)
  Sender: FDA-Public Use
  Company Number: None

PATIENT
  Age: 67 Year
  Sex: Male
  Weight: 78.6 kg

DRUGS (2)
  1. FOSAPREPITANT [Suspect]
     Indication: PROPHYLAXIS OF NAUSEA AND VOMITING
     Route: 042
     Dates: start: 20130911, end: 20130912
  2. FOSAPREPITANT [Suspect]
     Indication: PROPHYLAXIS OF NAUSEA AND VOMITING
     Route: 042
     Dates: start: 20130911, end: 20130912

REACTIONS (9)
  - Loss of consciousness [None]
  - Muscle spasms [None]
  - Flushing [None]
  - Hyperhidrosis [None]
  - Nausea [None]
  - Urinary incontinence [None]
  - Dyspnoea [None]
  - Generalised erythema [None]
  - Tachycardia [None]
